FAERS Safety Report 6539994-7 (Version None)
Quarter: 2010Q1

REPORT INFORMATION
  Report Type: 
  Country: None (occurrence: None)
  Receive Date: 20100115
  Receipt Date: 20100108
  Transmission Date: 20100710
  Serious: Yes (Hospitalization, Other)
  Sender: FDA-Public Use
  Company Number: PHHY2009FR48638

PATIENT
  Sex: Male
  Weight: 74 kg

DRUGS (7)
  1. LEPONEX [Suspect]
     Indication: SCHIZOPHRENIA
     Dosage: 200 MG DAILY
     Dates: start: 20081124
  2. LEPONEX [Suspect]
     Dosage: 300 MG DAILY
     Dates: start: 20090101
  3. LEPONEX [Suspect]
     Dosage: 250 MG DAILY
     Dates: start: 20090601
  4. LEPONEX [Suspect]
     Dosage: 200 MG DAILY
     Dates: start: 20091009
  5. PRAZEPAM [Concomitant]
  6. TERCIAN [Concomitant]
  7. IMOVANE [Concomitant]

REACTIONS (6)
  - ANXIETY [None]
  - BUNDLE BRANCH BLOCK [None]
  - DELIRIUM [None]
  - GENERAL PHYSICAL HEALTH DETERIORATION [None]
  - HYPOTENSION [None]
  - SINUS TACHYCARDIA [None]
